FAERS Safety Report 15745231 (Version 2)
Quarter: 2019Q1

REPORT INFORMATION
  Report Type: Spontaneous
  Country: ES (occurrence: ES)
  Receive Date: 20181220
  Receipt Date: 20190306
  Transmission Date: 20190417
  Serious: Yes (Hospitalization)
  Sender: FDA-Public Use
  Company Number: ES-PFIZER INC-2018517665

PATIENT
  Age: 44 Year
  Sex: Female

DRUGS (3)
  1. YURELAX [Suspect]
     Active Substance: CYCLOBENZAPRINE HYDROCHLORIDE
     Indication: NECK PAIN
     Dosage: UNK
     Route: 048
     Dates: start: 20181010, end: 20181028
  2. FLUCONAZOLE. [Suspect]
     Active Substance: FLUCONAZOLE
     Indication: SKIN CANDIDA
     Dosage: 150 MG, SINGLE
     Route: 048
     Dates: start: 20181023, end: 20181023
  3. ARCOXIA [Suspect]
     Active Substance: ETORICOXIB
     Indication: NECK PAIN
     Dosage: 60 MG, 1X/DAY
     Route: 048
     Dates: start: 20181010, end: 20181028

REACTIONS (3)
  - Perivascular dermatitis [Recovered/Resolved]
  - Eosinophilia [Recovering/Resolving]
  - Rash pruritic [Recovered/Resolved]

NARRATIVE: CASE EVENT DATE: 20181023
